FAERS Safety Report 18223459 (Version 3)
Quarter: 2020Q3

REPORT INFORMATION
  Report Type: Spontaneous
  Country: US (occurrence: US)
  Receive Date: 20200902
  Receipt Date: 20200925
  Transmission Date: 20201103
  Serious: Yes (Hospitalization, Other)
  Sender: FDA-Public Use
  Company Number: US-ALLERGAN-2033165US

PATIENT
  Sex: Female

DRUGS (6)
  1. VITAMIN D [Concomitant]
     Active Substance: VITAMIN D NOS
     Dosage: UNK
  2. BOTOX COSMETIC [Suspect]
     Active Substance: ONABOTULINUMTOXINA
     Indication: SKIN WRINKLING
     Dosage: UNK, SINGLE
     Route: 065
     Dates: start: 20200807, end: 20200807
  3. BOTOX COSMETIC [Suspect]
     Active Substance: ONABOTULINUMTOXINA
     Dosage: UNK, SINGLE
     Route: 065
     Dates: start: 202007, end: 202007
  4. VITAMIN C [Concomitant]
     Active Substance: ASCORBIC ACID
     Dosage: UNK
  5. BOTOX COSMETIC [Suspect]
     Active Substance: ONABOTULINUMTOXINA
     Dosage: UNK, SINGLE
     Route: 065
     Dates: start: 202005, end: 202005
  6. MULTIVITAMIN [Concomitant]
     Active Substance: VITAMINS
     Dosage: UNK

REACTIONS (9)
  - Intervertebral disc disorder [Not Recovered/Not Resolved]
  - Haemorrhage [Recovered/Resolved]
  - Middle insomnia [Unknown]
  - Fall [Recovered/Resolved]
  - Drug ineffective [Unknown]
  - Paralysis [Recovering/Resolving]
  - Monoplegia [Not Recovered/Not Resolved]
  - Pain [Recovered/Resolved]
  - Nerve injury [Recovered/Resolved]

NARRATIVE: CASE EVENT DATE: 202005
